FAERS Safety Report 9769610 (Version 2)
Quarter: 2013Q4

REPORT INFORMATION
  Report Type: Spontaneous
  Country: FR (occurrence: None)
  Receive Date: 20130911
  Receipt Date: 20131010
  Transmission Date: 20140711
  Serious: Yes (Hospitalization)
  Sender: FDA-Public Use
  Company Number: 2013037479

PATIENT
  Age: 16 Year
  Sex: Female

DRUGS (1)
  1. PRIVIGEN [Suspect]
     Indication: IMMUNE THROMBOCYTOPENIC PURPURA
     Dosage: 60 G TOTAL, 1 G/KG
     Route: 042
     Dates: start: 20130802, end: 20130802

REACTIONS (5)
  - Meningeal disorder [None]
  - Meningitis aseptic [None]
  - Headache [None]
  - Vomiting [None]
  - Pyrexia [None]
